FAERS Safety Report 18032565 (Version 3)
Quarter: 2021Q3

REPORT INFORMATION
  Report Type: Spontaneous
  Country: US (occurrence: US)
  Receive Date: 20200716
  Receipt Date: 20210701
  Transmission Date: 20211014
  Serious: Yes (Other)
  Sender: FDA-Public Use
  Company Number: US-JNJFOC-20200710786

PATIENT
  Age: 65 Year
  Sex: Female

DRUGS (9)
  1. ATENOLOL. [Concomitant]
     Active Substance: ATENOLOL
     Indication: HEADACHE
     Dates: start: 1999
  2. ELAVIL [Concomitant]
     Active Substance: AMITRIPTYLINE HYDROCHLORIDE
     Indication: CYSTITIS INTERSTITIAL
     Dates: start: 2003
  3. PERCOCET [Concomitant]
     Active Substance: ACETAMINOPHEN\OXYCODONE HYDROCHLORIDE
     Indication: HEADACHE
     Dates: start: 2014, end: 2020
  4. LEVOTHYROXINE. [Concomitant]
     Active Substance: LEVOTHYROXINE
     Indication: HYPOTHYROIDISM
     Dates: start: 2000
  5. TOPIRAMATE. [Concomitant]
     Active Substance: TOPIRAMATE
     Indication: HEADACHE
     Dates: start: 2013
  6. TIZANIDINE. [Concomitant]
     Active Substance: TIZANIDINE
     Indication: NECK PAIN
     Dates: start: 2014
  7. PERCOCET [Concomitant]
     Active Substance: ACETAMINOPHEN\OXYCODONE HYDROCHLORIDE
     Indication: NECK PAIN
  8. ELMIRON [Suspect]
     Active Substance: PENTOSAN POLYSULFATE SODIUM
     Indication: CYSTITIS INTERSTITIAL
     Route: 048
     Dates: start: 2003, end: 20190313
  9. RALOXIFENE. [Concomitant]
     Active Substance: RALOXIFENE
     Indication: BREAST MASS
     Dates: start: 2014, end: 2018

REACTIONS (5)
  - Maculopathy [Not Recovered/Not Resolved]
  - Chorioretinopathy [Unknown]
  - Neovascular age-related macular degeneration [Unknown]
  - Cataract nuclear [Unknown]
  - Dry age-related macular degeneration [Unknown]

NARRATIVE: CASE EVENT DATE: 201810
